FAERS Safety Report 11628108 (Version 1)
Quarter: 2015Q4

REPORT INFORMATION
  Report Type: Spontaneous
  Country: US (occurrence: None)
  Receive Date: 20151009
  Receipt Date: 20151009
  Transmission Date: 20160304
  Serious: Yes (Hospitalization, Other)
  Sender: FDA-Public Use
  Company Number: US-2015ARB001290

PATIENT
  Sex: Female

DRUGS (8)
  1. EDARBI [Suspect]
     Active Substance: AZILSARTAN KAMEDOXOMIL
     Indication: HYPERTENSION
     Route: 048
     Dates: end: 201401
  2. BIOTIN [Concomitant]
     Active Substance: BIOTIN
  3. ZYRTEC [Concomitant]
     Active Substance: CETIRIZINE HYDROCHLORIDE
  4. MAALOX ANTACID [Concomitant]
     Active Substance: ALUMINUM HYDROXIDE\DIMETHICONE\MAGNESIUM HYDROXIDE
  5. GAS-X [Concomitant]
     Active Substance: DIMETHICONE
  6. SIMVASTATIN. [Concomitant]
     Active Substance: SIMVASTATIN
  7. ASPIRIN. [Concomitant]
     Active Substance: ASPIRIN
  8. VITAMIN D [Concomitant]
     Active Substance: CHOLECALCIFEROL

REACTIONS (27)
  - Fatigue [None]
  - Intentional product use issue [None]
  - Oesophageal ulcer [None]
  - Weight decreased [None]
  - Hypochloraemia [None]
  - Irritable bowel syndrome [None]
  - Alopecia [None]
  - Poisoning [None]
  - Limb injury [None]
  - Pain [None]
  - Hyponatraemia [None]
  - Renal cyst [None]
  - Nausea [None]
  - Seizure [None]
  - Syncope [None]
  - Visual impairment [None]
  - Vomiting [None]
  - Blood pressure inadequately controlled [None]
  - Dizziness [None]
  - Product quality issue [None]
  - Diarrhoea [None]
  - Abdominal pain upper [None]
  - Blood pressure fluctuation [None]
  - Hyperhidrosis [None]
  - Muscle spasms [None]
  - Bundle branch block left [None]
  - Wrong technique in product usage process [None]

NARRATIVE: CASE EVENT DATE: 2011
